FAERS Safety Report 16033143 (Version 1)
Quarter: 2019Q1

REPORT INFORMATION
  Report Type: Spontaneous
  Country: DK (occurrence: DK)
  Receive Date: 20190305
  Receipt Date: 20190305
  Transmission Date: 20190418
  Serious: Yes (Hospitalization)
  Sender: FDA-Public Use
  Company Number: DK-ACCORD-110269

PATIENT
  Age: 58 Year
  Sex: Female

DRUGS (3)
  1. DOCETAXEL. [Suspect]
     Active Substance: DOCETAXEL
     Indication: PRODUCT USED FOR UNKNOWN INDICATION
     Dates: start: 20150506, end: 20150527
  2. EPIRUBICIN [Suspect]
     Active Substance: EPIRUBICIN
     Indication: BREAST CANCER
     Dosage: STRENGTH REDUCED TO 140 MG
     Dates: start: 20150202, end: 20150708
  3. SENDOXAN [Suspect]
     Active Substance: CYCLOPHOSPHAMIDE
     Indication: BREAST CANCER
     Dosage: STRENGTHENED TIL 900-1200 MG
     Dates: start: 20150202, end: 20150708

REACTIONS (12)
  - Dizziness [Not Recovered/Not Resolved]
  - Pyrexia [Recovered/Resolved]
  - Heart rate increased [Not Recovered/Not Resolved]
  - Atrial fibrillation [Not Recovered/Not Resolved]
  - Malaise [Recovered/Resolved]
  - Heart rate irregular [Not Recovered/Not Resolved]
  - Supraventricular tachycardia [Recovered/Resolved]
  - Decreased appetite [Recovered/Resolved]
  - Fall [Unknown]
  - Cardioversion [Recovered/Resolved]
  - Febrile neutropenia [Recovered/Resolved]
  - Dyspnoea [Recovered/Resolved]

NARRATIVE: CASE EVENT DATE: 201502
